FAERS Safety Report 8047821-4 (Version None)
Quarter: 2012Q1

REPORT INFORMATION
  Report Type: 
  Country: None (occurrence: None)
  Receive Date: 20120116
  Receipt Date: 20120112
  Transmission Date: 20120608
  Serious: Yes (Other)
  Sender: FDA-Public Use
  Company Number: US-SHIONOGI, INC-2011000284

PATIENT

DRUGS (3)
  1. KEFLEX [Suspect]
     Indication: CELLULITIS
     Dosage: 750 MG, EVERY 12 HOURS FOR 7 DAYS
     Dates: start: 20111219, end: 20111221
  2. SULFAMETHOPRIM [Concomitant]
     Dosage: UNK
     Dates: start: 20111201, end: 20111201
  3. KEFLEX [Suspect]
     Indication: ABSCESS

REACTIONS (9)
  - EPISTAXIS [None]
  - MEDICATION ERROR [None]
  - ABDOMINAL DISCOMFORT [None]
  - HAEMORRHAGE [None]
  - HYPERTENSION [None]
  - MALAISE [None]
  - PAIN [None]
  - HEADACHE [None]
  - ARTHRALGIA [None]
